FAERS Safety Report 7691839-8 (Version None)
Quarter: 2011Q3

REPORT INFORMATION
  Report Type: 
  Country: None (occurrence: None)
  Receive Date: 20110818
  Receipt Date: 20110809
  Transmission Date: 20111222
  Serious: Yes (Death, Life-Threatening, Other)
  Sender: FDA-Public Use
  Company Number: JP-MONARCH-K201100871

PATIENT
  Sex: Female
  Weight: 49 kg

DRUGS (15)
  1. PLAVIX [Concomitant]
     Indication: AORTIC ANEURYSM
     Dosage: 75 MG, QD
     Route: 048
     Dates: start: 20110409, end: 20110714
  2. MIYA BM [Concomitant]
     Indication: DIARRHOEA
     Dosage: 6 TABLETS IN 3 DIVIDED DOSES/DAY
     Route: 048
     Dates: start: 20110201, end: 20110714
  3. CLONAZEPAM [Concomitant]
     Indication: CONVULSION PROPHYLAXIS
     Dosage: 2 MG ONCE/DAY
     Route: 048
     Dates: start: 20110120
  4. ADONA [Concomitant]
     Indication: WOUND HAEMORRHAGE
     Dosage: 100 MG IN 2 DIVIDED DOSES/DAY
     Route: 042
     Dates: start: 20110614
  5. PHENYTOIN SODIUM CAP [Concomitant]
     Indication: CONVULSION PROPHYLAXIS
     Dosage: 125 MG, QD
     Route: 042
     Dates: start: 20110624, end: 20110702
  6. VALPROATE SODIUM [Concomitant]
     Indication: CONVULSION PROPHYLAXIS
     Dosage: 16 ML IN 2 DIVIDED DOSES/DAY
     Route: 048
     Dates: start: 20110622
  7. LEVETIRACETAM [Concomitant]
     Indication: CONVULSION PROPHYLAXIS
     Dosage: 500 MG, QD
     Route: 048
     Dates: start: 20110628, end: 20110716
  8. NORVASC [Concomitant]
     Indication: HYPERTENSION
     Dosage: 2.5 MG, QD
     Route: 048
     Dates: start: 20110220, end: 20110701
  9. PREDNISOLONE [Concomitant]
     Indication: RHEUMATOID ARTHRITIS
     Dosage: 10 MG, QD
     Route: 048
  10. ASPIRIN [Concomitant]
     Indication: AORTIC ANEURYSM
     Dosage: 100 MG, QD
     Route: 048
     Dates: start: 20110114, end: 20110714
  11. SYNERCID [Suspect]
     Indication: POSTOPERATIVE WOUND INFECTION
     Dosage: 1080 MG, QD
     Route: 041
     Dates: start: 20110628, end: 20110721
  12. PROTECADIN [Concomitant]
     Indication: PROPHYLAXIS AGAINST GASTROINTESTINAL ULCER
     Dosage: 20 MG IN 2 DIVIDED DOSES/DAY
     Route: 048
     Dates: start: 20110114, end: 20110714
  13. TRANEXAMIC ACID [Concomitant]
     Indication: WOUND HAEMORRHAGE
     Dosage: 1000 MG IN 2 DIVIDED DOSES/DAY
     Route: 065
     Dates: start: 20110614
  14. POTASSIUM GLUCONATE TAB [Concomitant]
     Indication: BLOOD POTASSIUM DECREASED
     Dosage: 32 MEQ IN 3 DIVIDED DOSES/DAY
     Route: 048
     Dates: start: 20110606, end: 20110714
  15. RIFAMPICIN [Concomitant]
     Indication: POSTOPERATIVE WOUND INFECTION
     Dosage: 450 MG, QD
     Route: 048
     Dates: start: 20110208, end: 20110721

REACTIONS (5)
  - WOUND HAEMORRHAGE [None]
  - THROMBOCYTOPENIA [None]
  - DISSEMINATED INTRAVASCULAR COAGULATION [None]
  - MEDIASTINITIS [None]
  - SEPSIS [None]
